FAERS Safety Report 26107610 (Version 1)
Quarter: 2025Q4

REPORT INFORMATION
  Report Type: Other
  Country: EU (occurrence: EU)
  Receive Date: 20251201
  Receipt Date: 20251201
  Transmission Date: 20260118
  Serious: Yes (Hospitalization)
  Sender: ZYDUS PHARM
  Company Number: None

PATIENT

DRUGS (2)
  1. SERTRALINE [Suspect]
     Active Substance: SERTRALINE HYDROCHLORIDE
     Indication: Anxious parent
     Dosage: 1 DOSAGE FORM DAILY
     Route: 064
     Dates: start: 20240425, end: 20250110
  2. OXAZEPAM [Suspect]
     Active Substance: OXAZEPAM
     Indication: Anxious parent
     Dosage: 1 DOSAGE FORM DAILY
     Route: 064
     Dates: start: 20240425, end: 20250110

REACTIONS (2)
  - Respiratory distress [Recovered/Resolved]
  - Withdrawal syndrome [Recovered/Resolved]

NARRATIVE: CASE EVENT DATE: 20250114
